FAERS Safety Report 7761056-1 (Version None)
Quarter: 2011Q3

REPORT INFORMATION
  Report Type: 
  Country: None (occurrence: None)
  Receive Date: 20110920
  Receipt Date: 20110908
  Transmission Date: 20111222
  Serious: Yes (Hospitalization, Other)
  Sender: FDA-Public Use
  Company Number: US-BAYER-201039291NA

PATIENT
  Age: 43 Year
  Sex: Female
  Weight: 68 kg

DRUGS (10)
  1. AMBIEN [Concomitant]
     Dosage: 10 MG, UNK
     Dates: start: 20030101
  2. YASMIN [Suspect]
     Indication: CONTRACEPTION
     Dosage: UNK
     Dates: start: 20020801, end: 20031201
  3. EFFEXOR [Concomitant]
     Dosage: UNK
     Dates: start: 20030101
  4. KLONOPIN [Concomitant]
     Dosage: UNK
     Dates: start: 20030101
  5. LEXAPRO [Concomitant]
     Dosage: 10 MG, QD
     Dates: start: 20030101
  6. YASMIN [Suspect]
     Indication: PREMENSTRUAL SYNDROME
  7. CLONAZEPAM [Concomitant]
     Dosage: UNK
     Dates: start: 20031001
  8. NSAID'S [Concomitant]
     Dosage: UNK UNK, PRN
     Dates: start: 20010101
  9. PLAVIX [Concomitant]
     Dosage: UNK
     Dates: start: 20031223, end: 20040813
  10. OMNICEF [Concomitant]
     Dosage: UNK
     Dates: start: 20031001, end: 20031101

REACTIONS (5)
  - PULMONARY INFARCTION [None]
  - THROMBOSIS [None]
  - CEREBROVASCULAR ACCIDENT [None]
  - PULMONARY EMBOLISM [None]
  - DEEP VEIN THROMBOSIS [None]
